FAERS Safety Report 7722122-X (Version None)
Quarter: 2011Q3

REPORT INFORMATION
  Report Type: 
  Country: None (occurrence: None)
  Receive Date: 20110831
  Receipt Date: 20110826
  Transmission Date: 20111222
  Serious: Yes (Other)
  Sender: FDA-Public Use
  Company Number: US-PFIZER INC-2008099029

PATIENT
  Sex: Female
  Weight: 68.027 kg

DRUGS (5)
  1. FLAGYL [Suspect]
     Indication: CLOSTRIDIUM DIFFICILE COLITIS
     Dosage: 500 MG, 2X/DAY
     Route: 042
     Dates: start: 20080707, end: 20080826
  2. GABAPENTIN [Suspect]
     Indication: NEUROPATHY PERIPHERAL
     Dosage: UNK
     Dates: start: 20080901
  3. FLAGYL [Suspect]
     Indication: DIARRHOEA
     Dosage: 250 MG, 1X/DAY
     Route: 042
     Dates: start: 20080613
  4. ZOCOR [Concomitant]
     Indication: HYPERTENSION
     Dosage: 10 MG, DAILY
     Route: 048
     Dates: start: 20000101
  5. ZOCOR [Concomitant]
     Indication: BLOOD CHOLESTEROL INCREASED

REACTIONS (3)
  - DRUG INEFFECTIVE [None]
  - CLOSTRIDIUM DIFFICILE COLITIS [None]
  - NEUROPATHY PERIPHERAL [None]
